FAERS Safety Report 14996637 (Version 2)
Quarter: 2018Q2

REPORT INFORMATION
  Report Type: Spontaneous
  Country: US (occurrence: US)
  Receive Date: 20180611
  Receipt Date: 20180629
  Transmission Date: 20180711
  Serious: No
  Sender: FDA-Public Use
  Company Number: US-BEH-2018091462

PATIENT
  Age: 64 Year
  Sex: Female

DRUGS (1)
  1. HIZENTRA [Suspect]
     Active Substance: HUMAN IMMUNOGLOBULIN G
     Indication: SELECTIVE IGG SUBCLASS DEFICIENCY
     Dosage: 14 G (70 ML), QOW
     Route: 058
     Dates: start: 20160907

REACTIONS (2)
  - Infusion site extravasation [Recovered/Resolved]
  - Infusion site haemorrhage [Recovered/Resolved]

NARRATIVE: CASE EVENT DATE: 20180601
